FAERS Safety Report 7315218-8 (Version None)
Quarter: 2011Q1

REPORT INFORMATION
  Report Type: 
  Country: None (occurrence: None)
  Receive Date: 20110225
  Receipt Date: 20110218
  Transmission Date: 20110831
  Serious: Yes (Hospitalization, Other)
  Sender: FDA-Public Use
  Company Number: US-JNJFOC-20100804937

PATIENT
  Sex: Female

DRUGS (3)
  1. LEVAQUIN [Suspect]
     Indication: ASTHMA
     Route: 048
  2. LEVAQUIN [Suspect]
     Indication: COUGH
     Route: 048
  3. LEVAQUIN [Suspect]
     Indication: BRONCHITIS CHRONIC
     Route: 048

REACTIONS (1)
  - ROTATOR CUFF SYNDROME [None]
